FAERS Safety Report 9045633 (Version 1)
Quarter: 2013Q1

REPORT INFORMATION
  Report Type: Report from Study
  Country: US (occurrence: US)
  Receive Date: 20130131
  Receipt Date: 20130131
  Transmission Date: 20140127
  Serious: No
  Sender: FDA-Public Use
  Company Number: US-ABBOTT-12P-163-1015213-00

PATIENT
  Sex: Female

DRUGS (5)
  1. HUMIRA [Suspect]
     Indication: RHEUMATOID ARTHRITIS
     Route: 058
     Dates: start: 201211
  2. METHOTREXATE [Concomitant]
     Indication: PRODUCT USED FOR UNKNOWN INDICATION
  3. FOLIC ACID [Concomitant]
     Indication: PRODUCT USED FOR UNKNOWN INDICATION
  4. CPAP MACHINE [Concomitant]
     Indication: PRODUCT USED FOR UNKNOWN INDICATION
  5. PROVENTIL [Concomitant]
     Indication: PRODUCT USED FOR UNKNOWN INDICATION

REACTIONS (7)
  - Poor quality sleep [Unknown]
  - Muscle twitching [Unknown]
  - Hypoaesthesia [Unknown]
  - Breast pain [Unknown]
  - Local swelling [Unknown]
  - Increased tendency to bruise [Unknown]
  - Injection site pain [Unknown]
